FAERS Safety Report 7256598-1 (Version None)
Quarter: 2011Q1

REPORT INFORMATION
  Report Type: 
  Country: None (occurrence: None)
  Receive Date: 20110129
  Receipt Date: 20110119
  Transmission Date: 20110831
  Serious: Yes (Hospitalization)
  Sender: FDA-Public Use
  Company Number: JP-AMGEN-JPNCT2011005066

PATIENT
  Age: 83 Year
  Sex: Female
  Weight: 30 kg

DRUGS (8)
  1. PANTOSIN [Concomitant]
     Route: 048
  2. MINOMYCIN [Concomitant]
     Route: 048
  3. HIRUDOID SOFT OINTMENT [Concomitant]
     Route: 062
  4. FERROUS CITRATE [Concomitant]
     Route: 048
  5. PANITUMUMAB [Suspect]
     Indication: COLORECTAL CANCER
     Dosage: UNK
     Dates: start: 20101018
  6. TOKUHON [Suspect]
     Route: 062
  7. AMLODIPINE [Concomitant]
     Route: 048
  8. MAGNESIUM OXIDE [Concomitant]
     Route: 048

REACTIONS (2)
  - SKIN EROSION [None]
  - FEMORAL NECK FRACTURE [None]
